FAERS Safety Report 6502806-1 (Version None)
Quarter: 2009Q4

REPORT INFORMATION
  Report Type: 
  Country: None (occurrence: None)
  Receive Date: 20091127
  Receipt Date: 20090527
  Transmission Date: 20100525
  Serious: Yes (Other)
  Sender: FDA-Public Use
  Company Number: WAES 0905USA04111

PATIENT
  Age: 57 Year
  Sex: Female

DRUGS (1)
  1. FOSAMAX [Suspect]
     Indication: OSTEOPOROSIS
     Dosage: 70 MG/WKY/PO
     Route: 048
     Dates: start: 20031001, end: 20070801

REACTIONS (13)
  - ABSCESS [None]
  - BONE DISORDER [None]
  - BRUXISM [None]
  - EXOSTOSIS [None]
  - FISTULA DISCHARGE [None]
  - GINGIVAL DISORDER [None]
  - GINGIVAL PAIN [None]
  - IMPAIRED HEALING [None]
  - ORAL INFECTION [None]
  - OSTEONECROSIS [None]
  - RESORPTION BONE INCREASED [None]
  - STOMATITIS [None]
  - TOOTH ABSCESS [None]
